FAERS Safety Report 4389501-2 (Version None)
Quarter: 2004Q3

REPORT INFORMATION
  Report Type: 
  Country: None (occurrence: None)
  Receive Date: 20040702
  Receipt Date: 20040528
  Transmission Date: 20050211
  Serious: Yes (Other)
  Sender: FDA-Public Use
  Company Number: NL-GLAXOSMITHKLINE-B0334274A

PATIENT
  Age: 55 Year
  Sex: Female
  Weight: 60 kg

DRUGS (3)
  1. PAROXETINE HYDROCHLORIDE [Suspect]
     Indication: DEPRESSION
     Dosage: 20MG PER DAY
     Dates: start: 20040513
  2. ACETAMINOPHEN [Concomitant]
     Dosage: 500MG PER DAY
     Dates: start: 20040515
  3. BROMAZEPAM [Concomitant]
     Dosage: 3MG PER DAY
     Dates: start: 20040515

REACTIONS (3)
  - BLOOD LACTATE DEHYDROGENASE INCREASED [None]
  - METASTASES TO BONE [None]
  - METASTASES TO CENTRAL NERVOUS SYSTEM [None]
